FAERS Safety Report 25951803 (Version 2)
Quarter: 2025Q4

REPORT INFORMATION
  Report Type: Spontaneous
  Country: JP (occurrence: JP)
  Receive Date: 20251023
  Receipt Date: 20251203
  Transmission Date: 20260118
  Serious: No
  Sender: CSL BEHRING
  Company Number: JP-BEH-2025217960

PATIENT

DRUGS (1)
  1. HIZENTRA [Suspect]
     Active Substance: HUMAN IMMUNOGLOBULIN G
     Indication: Hypogammaglobulinaemia
     Dosage: UNK, SINGLE
     Route: 065
     Dates: end: 20250806

REACTIONS (1)
  - Product dose omission issue [Unknown]
